FAERS Safety Report 21466424 (Version 1)
Quarter: 2022Q4

REPORT INFORMATION
  Report Type: Report from Study
  Country: US (occurrence: US)
  Receive Date: 20221017
  Receipt Date: 20221017
  Transmission Date: 20230113
  Serious: No
  Sender: FDA-Public Use
  Company Number: US-ABBVIE-4142250

PATIENT
  Sex: Female

DRUGS (2)
  1. RINVOQ [Suspect]
     Active Substance: UPADACITINIB
     Indication: Product used for unknown indication
     Route: 048
     Dates: start: 20220712, end: 2022
  2. RINVOQ [Suspect]
     Active Substance: UPADACITINIB
     Indication: Product used for unknown indication
     Route: 048
     Dates: start: 2022

REACTIONS (8)
  - Blood urine present [Unknown]
  - Neutropenia [Not Recovered/Not Resolved]
  - Food intolerance [Unknown]
  - Hypokalaemia [Not Recovered/Not Resolved]
  - Flatulence [Unknown]
  - Taste disorder [Unknown]
  - Bladder discomfort [Unknown]
  - Acne [Unknown]

NARRATIVE: CASE EVENT DATE: 20220101
